FAERS Safety Report 10181982 (Version 2)
Quarter: 2014Q2

REPORT INFORMATION
  Report Type: Spontaneous
  Country: US (occurrence: US)
  Receive Date: 20140519
  Receipt Date: 20140527
  Transmission Date: 20141212
  Serious: Yes (Death, Hospitalization)
  Sender: FDA-Public Use
  Company Number: US-B.I. PHARMACEUTICALS,INC./RIDGEFIELD-2014-BI-21970BP

PATIENT
  Age: 60 Year
  Sex: Female

DRUGS (9)
  1. SPIRIVA [Suspect]
     Indication: CHRONIC OBSTRUCTIVE PULMONARY DISEASE
     Dosage: 18 MCG
     Route: 055
     Dates: start: 201308
  2. ZANTAC (RANITIDINE HYDROCHLORIDE) [Suspect]
     Indication: GASTROOESOPHAGEAL REFLUX DISEASE
     Route: 048
     Dates: start: 2012
  3. ALBUTEROL [Concomitant]
     Route: 055
  4. FLONASE [Concomitant]
     Dosage: FORMULATION: NASAL SPRAY
     Route: 045
  5. HCTZ [Concomitant]
     Route: 048
  6. NEURONTIN [Concomitant]
     Route: 048
  7. SYMBICORT [Concomitant]
     Route: 055
  8. THEOPHYLLINE [Concomitant]
     Route: 048
  9. SIMVASTATIN [Concomitant]
     Route: 048

REACTIONS (1)
  - Cardiac arrest [Fatal]
